FAERS Safety Report 7853249-X (Version None)
Quarter: 2011Q4

REPORT INFORMATION
  Report Type: 
  Country: None (occurrence: None)
  Receive Date: 20111026
  Receipt Date: 20111014
  Transmission Date: 20120403
  Serious: Yes (Hospitalization)
  Sender: FDA-Public Use
  Company Number: JP-MERCK-1109USA01638

PATIENT
  Sex: Female

DRUGS (15)
  1. MAGMITT [Concomitant]
     Route: 065
     Dates: start: 20110828
  2. BLEO [Concomitant]
     Indication: LYMPHOMA
     Route: 065
     Dates: start: 20110829, end: 20110829
  3. PURSENNID (SENNOSIDES) [Concomitant]
     Route: 065
     Dates: start: 20110828
  4. EMEND [Suspect]
     Indication: PROPHYLAXIS OF NAUSEA AND VOMITING
     Route: 048
     Dates: start: 20110829, end: 20110829
  5. ALLOPURINOL [Concomitant]
     Route: 065
     Dates: start: 20110828
  6. SULFAMETHOXAZOLE [Concomitant]
     Route: 065
     Dates: start: 20110828
  7. DACARBAZINE [Concomitant]
     Indication: LYMPHOMA
     Route: 065
     Dates: start: 20110829, end: 20110829
  8. FLUCONAZOLE [Concomitant]
     Route: 065
     Dates: start: 20110828
  9. DOXORUBICIN HYDROCHLORIDE [Concomitant]
     Route: 065
     Dates: start: 20110829, end: 20110829
  10. GRANISETRON HYDROCHLORIDE [Concomitant]
     Route: 065
     Dates: start: 20110829, end: 20110829
  11. RHEUMATREX [Suspect]
     Indication: RHEUMATOID ARTHRITIS
     Route: 048
     Dates: start: 19970101, end: 20110828
  12. EMEND [Suspect]
     Route: 048
     Dates: start: 20110830, end: 20110831
  13. NAPROXEN [Suspect]
     Indication: TUMOUR ASSOCIATED FEVER
     Route: 048
     Dates: start: 20110820, end: 20110830
  14. EXAL [Concomitant]
     Indication: LYMPHOMA
     Route: 065
     Dates: start: 20110829, end: 20110829
  15. RABEPRAZOLE SODIUM [Concomitant]
     Route: 065
     Dates: start: 20110824

REACTIONS (1)
  - AGRANULOCYTOSIS [None]
